FAERS Safety Report 25200811 (Version 2)
Quarter: 2025Q3

REPORT INFORMATION
  Report Type: Spontaneous
  Country: JP (occurrence: JP)
  Receive Date: 20250415
  Receipt Date: 20250714
  Transmission Date: 20251021
  Serious: No
  Sender: TAKEDA
  Company Number: JP-TAKEDA-2025TJP003770

PATIENT
  Age: 6 Decade
  Sex: Male

DRUGS (1)
  1. ROZEREM [Suspect]
     Active Substance: RAMELTEON
     Indication: Product used for unknown indication

REACTIONS (2)
  - Inappropriate schedule of product administration [Unknown]
  - No adverse event [Unknown]
